FAERS Safety Report 8851681 (Version 7)
Quarter: 2012Q4

REPORT INFORMATION
  Report Type: 
  Country: US (occurrence: US)
  Receive Date: 20121022
  Receipt Date: 20121123
  Transmission Date: 20130627
  Serious: Yes (Other)
  Sender: FDA-Public Use
  Company Number: US-PFIZER INC-2012261018

PATIENT
  Age: 82 Year
  Sex: Female
  Weight: 49.89 kg

DRUGS (2)
  1. DEPO-MEDROL [Suspect]
     Indication: CARPAL TUNNEL SYNDROME
     Dosage: UNK
     Dates: start: 20121002
  2. LORTAB [Concomitant]
     Indication: PAIN IN HIP
     Dosage: 7.5/500 mg, UNK

REACTIONS (10)
  - Diplegia [Unknown]
  - Dysgraphia [Unknown]
  - Musculoskeletal stiffness [Unknown]
  - Pain in extremity [Not Recovered/Not Resolved]
  - Dizziness [Unknown]
  - Oedema peripheral [Unknown]
  - Headache [Recovering/Resolving]
  - Drug intolerance [Unknown]
  - Arthralgia [Unknown]
  - Joint stiffness [Unknown]
